FAERS Safety Report 17436482 (Version 2)
Quarter: 2020Q1

REPORT INFORMATION
  Report Type: Spontaneous
  Country: FR (occurrence: FR)
  Receive Date: 20200219
  Receipt Date: 20200326
  Transmission Date: 20200409
  Serious: Yes (Death, Disabling)
  Sender: FDA-Public Use
  Company Number: FR-CELGENEUS-FRA-20200108653

PATIENT
  Age: 82 Year
  Sex: Male

DRUGS (1)
  1. IDHIFA [Suspect]
     Active Substance: ENASIDENIB MESYLATE
     Indication: ACUTE MYELOID LEUKAEMIA
     Dosage: 100 MILLIGRAM
     Route: 048
     Dates: start: 20180904

REACTIONS (3)
  - Fall [Fatal]
  - Weight decreased [Not Recovered/Not Resolved]
  - Head injury [Fatal]

NARRATIVE: CASE EVENT DATE: 202001
